FAERS Safety Report 4360834-9 (Version None)
Quarter: 2004Q2

REPORT INFORMATION
  Report Type: 
  Country: None (occurrence: None)
  Receive Date: 20040517
  Receipt Date: 20040416
  Transmission Date: 20050107
  Serious: Yes (Hospitalization)
  Sender: FDA-Public Use
  Company Number: PHRM2004FR00853

PATIENT
  Age: 48 Year
  Sex: Male
  Weight: 70 kg

DRUGS (2)
  1. LIORESAL [Suspect]
     Indication: MUSCLE SPASTICITY
     Dosage: 50 UG, ONCE/SINGLE, INTRATHECAL
     Route: 039
     Dates: start: 20040128, end: 20040128
  2. FORLAX (MACROGOL) POWDER [Concomitant]

REACTIONS (5)
  - HEADACHE [None]
  - HYPERHIDROSIS [None]
  - HYPOTENSION [None]
  - ILEUS PARALYTIC [None]
  - URINARY RETENTION [None]
